FAERS Safety Report 12047927 (Version 1)
Quarter: 2016Q1

REPORT INFORMATION
  Report Type: Spontaneous
  Country: US (occurrence: US)
  Receive Date: 20160209
  Receipt Date: 20160209
  Transmission Date: 20160526
  Serious: Yes (Other)
  Sender: FDA-Public Use
  Company Number: US-ASTRAZENECA-2016SE11707

PATIENT
  Sex: Female
  Weight: 19.5 kg

DRUGS (2)
  1. ERYTHROMYCIN. [Concomitant]
     Active Substance: ERYTHROMYCIN
     Indication: HELICOBACTER INFECTION
     Dosage: FOR JUST A TEN DAY OR A TWO WEEK COURSE
     Dates: start: 201401
  2. NEXIUM [Suspect]
     Active Substance: ESOMEPRAZOLE MAGNESIUM
     Indication: HELICOBACTER INFECTION
     Dosage: 10 MG IN MORNING AND 10 MG AT NIGHT
     Route: 048
     Dates: start: 201402

REACTIONS (7)
  - Blood chromogranin A increased [Unknown]
  - Malaise [Unknown]
  - Vomiting [Unknown]
  - Blood gastrin increased [Unknown]
  - Neuroendocrine tumour [Unknown]
  - Serum serotonin increased [Unknown]
  - Retching [Unknown]
